FAERS Safety Report 15490119 (Version 2)
Quarter: 2018Q4

REPORT INFORMATION
  Report Type: Spontaneous
  Country: US (occurrence: US)
  Receive Date: 20181011
  Receipt Date: 20181016
  Transmission Date: 20190205
  Serious: Yes (Other)
  Sender: FDA-Public Use
  Company Number: US-SA-2018SA277287

PATIENT
  Age: 44 Year
  Sex: Male

DRUGS (2)
  1. METFORMIN HYDROCHLORIDE. [Concomitant]
     Active Substance: METFORMIN HYDROCHLORIDE
     Indication: TYPE 2 DIABETES MELLITUS
     Dosage: UNK
     Dates: start: 201710
  2. TOUJEO [Suspect]
     Active Substance: INSULIN GLARGINE
     Indication: TYPE 2 DIABETES MELLITUS
     Dosage: 14 IU, QD
     Dates: start: 20181001

REACTIONS (3)
  - Blood glucose fluctuation [Recovered/Resolved]
  - Blood glucose increased [Recovered/Resolved]
  - Underdose [Unknown]
